FAERS Safety Report 11826067 (Version 2)
Quarter: 2016Q2

REPORT INFORMATION
  Report Type: Spontaneous
  Country: GB (occurrence: GB)
  Receive Date: 20151211
  Receipt Date: 20160427
  Transmission Date: 20160815
  Serious: Yes (Other)
  Sender: FDA-Public Use
  Company Number: GB-WATSON-2015-27320

PATIENT
  Age: 32 Year
  Sex: Female

DRUGS (2)
  1. CERAZETTE                          /00754001/ [Interacting]
     Active Substance: DESOGESTREL
     Indication: ORAL CONTRACEPTION
     Dosage: 75 ?G, UNKNOWN
     Route: 048
     Dates: start: 20150803
  2. LAMOTRIGINE (UNKNOWN) [Suspect]
     Active Substance: LAMOTRIGINE
     Indication: EPILEPSY
     Dosage: 300 MG, DAILY (100MG AM 200MG PM)
     Route: 048
     Dates: start: 20090101

REACTIONS (3)
  - Maternal exposure during pregnancy [Unknown]
  - Pregnancy on oral contraceptive [Unknown]
  - Drug interaction [Unknown]
